FAERS Safety Report 5300007-6 (Version None)
Quarter: 2007Q2

REPORT INFORMATION
  Report Type: 
  Country: None (occurrence: None)
  Receive Date: 20070417
  Receipt Date: 20070405
  Transmission Date: 20071010
  Serious: Yes (Other)
  Sender: FDA-Public Use
  Company Number: CA-PFIZER INC-2007002408

PATIENT
  Sex: Male
  Weight: 103 kg

DRUGS (5)
  1. SUTENT [Suspect]
     Indication: RENAL CELL CARCINOMA STAGE UNSPECIFIED
     Route: 048
  2. WARFARIN SODIUM [Concomitant]
     Route: 048
  3. PAROXETINE HYDROCHLORIDE [Concomitant]
     Route: 048
  4. QUESTRAN [Concomitant]
     Route: 065
  5. PSYLLIUM HYDROPHILIC MUCILLOID [Concomitant]
     Route: 065

REACTIONS (4)
  - FATIGUE [None]
  - PRURITUS [None]
  - RASH [None]
  - URTICARIA [None]
